FAERS Safety Report 7386391-0 (Version None)
Quarter: 2011Q1

REPORT INFORMATION
  Report Type: 
  Country: None (occurrence: None)
  Receive Date: 20110331
  Receipt Date: 20110314
  Transmission Date: 20110831
  Serious: Yes (Other)
  Sender: FDA-Public Use
  Company Number: US-SANOFI-AVENTIS-2011SA016476

PATIENT
  Age: 40 Year
  Sex: Female

DRUGS (3)
  1. OPTICLICK [Suspect]
     Dates: start: 20060101
  2. LANTUS [Suspect]
     Indication: TYPE 2 DIABETES MELLITUS
     Dosage: DOSE:65 UNIT(S)
     Route: 058
     Dates: start: 20060101
  3. JANUVIA [Concomitant]

REACTIONS (7)
  - EYE DISORDER [None]
  - BLOOD GLUCOSE INCREASED [None]
  - AMNESIA [None]
  - WEIGHT INCREASED [None]
  - STAPHYLOCOCCAL INFECTION [None]
  - INJECTION SITE HAEMATOMA [None]
  - NERVOUS SYSTEM DISORDER [None]
